FAERS Safety Report 10769129 (Version 2)
Quarter: 2015Q2

REPORT INFORMATION
  Report Type: Spontaneous
  Country: DK (occurrence: DK)
  Receive Date: 20150206
  Receipt Date: 20150522
  Transmission Date: 20150821
  Serious: Yes (Hospitalization)
  Sender: FDA-Public Use
  Company Number: DK-ABBVIE-15K-044-1341316-00

PATIENT
  Age: 47 Year
  Sex: Female

DRUGS (2)
  1. IBUMETIN [Concomitant]
     Active Substance: IBUPROFEN
     Indication: ANKYLOSING SPONDYLITIS
     Dates: start: 2012
  2. HUMIRA [Suspect]
     Active Substance: ADALIMUMAB
     Indication: ANKYLOSING SPONDYLITIS
     Route: 065
     Dates: start: 201204

REACTIONS (7)
  - Retinal artery occlusion [Recovered/Resolved with Sequelae]
  - Retinal artery embolism [Recovered/Resolved with Sequelae]
  - Aortic bruit [Unknown]
  - Hypertension [Unknown]
  - Cerebrovascular accident [Unknown]
  - Visual impairment [Not Recovered/Not Resolved]
  - Visual field defect [Not Recovered/Not Resolved]

NARRATIVE: CASE EVENT DATE: 20141115
